FAERS Safety Report 7919826-2 (Version None)
Quarter: 2011Q4

REPORT INFORMATION
  Report Type: 
  Country: None (occurrence: None)
  Receive Date: 20111117
  Receipt Date: 20111117
  Transmission Date: 20120403
  Serious: Yes (Life-Threatening, Other)
  Sender: FDA-Public Use
  Company Number: None

PATIENT
  Age: 70 Year
  Sex: Male
  Weight: 113.39 kg

DRUGS (1)
  1. THEOPHYLLINE [Suspect]
     Indication: ASTHMA
     Dosage: ONE PILL
     Route: 048
     Dates: start: 20111108, end: 20111109

REACTIONS (15)
  - HYPOAESTHESIA [None]
  - HYPERHIDROSIS [None]
  - PARAESTHESIA [None]
  - CONVULSION [None]
  - PRESYNCOPE [None]
  - CHEST DISCOMFORT [None]
  - MALAISE [None]
  - FEELING COLD [None]
  - LIP DISORDER [None]
  - DYSPNOEA [None]
  - ASTHENIA [None]
  - TREMOR [None]
  - DIZZINESS [None]
  - VOMITING [None]
  - TONGUE DISORDER [None]
